FAERS Safety Report 8617562 (Version 2)
Quarter: 2014Q1

REPORT INFORMATION
  Report Type: Spontaneous
  Country: US (occurrence: None)
  Receive Date: 20120323
  Receipt Date: 20130305
  Transmission Date: 20141002
  Serious: Yes (Hospitalization)
  Sender: FDA-Public Use
  Company Number: 163-21880-11080814

PATIENT
  Age: 66 Year
  Sex: Male

DRUGS (8)
  1. REVLIMID [Suspect]
     Indication: PLASMA CELL MYELOMA
     Dosage: 25 MG, DAILY X 21 DAYS, PO
     Route: 048
     Dates: start: 20110406
  2. GUAIFENESIN [Concomitant]
  3. MUCINEX [Concomitant]
  4. ZOLPIDEM TARTRATE [Concomitant]
  5. HYDROCODONE/ACETAMINOPHEN (REMEDEINE) [Concomitant]
  6. AMLODIPINE BESYLATE (AMLODIPINE BESILATE) [Concomitant]
  7. ASPIRIN (ACETYLSALICYLIC ACID) [Concomitant]
  8. OMEPRAZOLE [Concomitant]

REACTIONS (3)
  - White blood cell count decreased [None]
  - Platelet count decreased [None]
  - Infusion site infection [None]
